FAERS Safety Report 9894884 (Version 1)
Quarter: 2014Q1

REPORT INFORMATION
  Report Type: Spontaneous
  Country: ZA (occurrence: ZA)
  Receive Date: 20140213
  Receipt Date: 20140213
  Transmission Date: 20141002
  Serious: Yes (Other)
  Sender: FDA-Public Use
  Company Number: ZA-ABBVIE-14P-143-1200297-00

PATIENT
  Age: 64 Year
  Sex: Male

DRUGS (2)
  1. EPILIM [Suspect]
     Indication: PRODUCT USED FOR UNKNOWN INDICATION
  2. CASPOFUNGIN ACETATE [Suspect]
     Indication: CANDIDA INFECTION

REACTIONS (1)
  - Drug-induced liver injury [Recovered/Resolved]
